FAERS Safety Report 18501489 (Version 1)
Quarter: 2020Q4

REPORT INFORMATION
  Report Type: Spontaneous
  Country: FR (occurrence: FR)
  Receive Date: 20201113
  Receipt Date: 20201113
  Transmission Date: 20210114
  Serious: Yes (Other)
  Sender: FDA-Public Use
  Company Number: FR-TEVA-2020-FR-1847975

PATIENT
  Age: 46 Year
  Sex: Female

DRUGS (1)
  1. KETOPROFENE [Suspect]
     Active Substance: KETOPROFEN
     Indication: BACK PAIN
     Route: 048

REACTIONS (3)
  - Bradycardia [Recovered/Resolved]
  - Feeling abnormal [Recovered/Resolved]
  - Chest pain [Recovered/Resolved]

NARRATIVE: CASE EVENT DATE: 202010
